FAERS Safety Report 10246028 (Version 1)
Quarter: 2014Q2

REPORT INFORMATION
  Report Type: Spontaneous
  Country: US (occurrence: None)
  Receive Date: 20140617
  Receipt Date: 20140617
  Transmission Date: 20141212
  Serious: Yes (Other)
  Sender: FDA-Public Use
  Company Number: 2014-US-007150

PATIENT
  Age: 17 Year
  Sex: Male

DRUGS (2)
  1. XYREM [Suspect]
     Indication: NARCOLEPSY
     Route: 048
     Dates: start: 201405, end: 2014
  2. XYREM [Suspect]
     Indication: CATAPLEXY
     Route: 048
     Dates: start: 201405, end: 2014

REACTIONS (7)
  - Swelling face [None]
  - Lip swelling [None]
  - Urticaria [None]
  - Dyspnoea [None]
  - Off label use [None]
  - Cataplexy [None]
  - Condition aggravated [None]
